FAERS Safety Report 11932456 (Version 2)
Quarter: 2016Q1

REPORT INFORMATION
  Report Type: Report from Study
  Country: ES (occurrence: ES)
  Receive Date: 20160120
  Receipt Date: 20160125
  Transmission Date: 20160526
  Serious: Yes (Hospitalization)
  Sender: FDA-Public Use
  Company Number: ES-ROCHE-1689570

PATIENT
  Age: 66 Year
  Sex: Female
  Weight: 46.5 kg

DRUGS (7)
  1. COBIMETINIB [Suspect]
     Active Substance: COBIMETINIB
     Indication: METASTATIC MALIGNANT MELANOMA
     Dosage: LAST DOSE GIVEN PRIOR TO ONSET OF SAE WAS ON 03/JAN/2016
     Route: 048
     Dates: start: 20151223
  2. GABAPENTIN. [Concomitant]
     Active Substance: GABAPENTIN
  3. OMEPRAZOLE. [Concomitant]
     Active Substance: OMEPRAZOLE
  4. METAMIZOLE [Suspect]
     Active Substance: METAMIZOLE
     Indication: HEADACHE
     Route: 030
     Dates: start: 20160101
  5. CONBRIZA [Concomitant]
     Active Substance: BAZEDOXIFENE ACETATE
  6. METAMIZOLE [Suspect]
     Active Substance: METAMIZOLE
     Dosage: 2 CAPSULES
     Route: 048
     Dates: start: 20160101
  7. VEMURAFENIB [Suspect]
     Active Substance: VEMURAFENIB
     Indication: METASTATIC MALIGNANT MELANOMA
     Dosage: LAST DOSE PRIOR TO ONSET OF SAE WAS ON 03/JAN/2016
     Route: 048
     Dates: start: 20151223

REACTIONS (1)
  - Erythema multiforme [Recovered/Resolved with Sequelae]

NARRATIVE: CASE EVENT DATE: 20160101
